FAERS Safety Report 6285300-5 (Version None)
Quarter: 2009Q3

REPORT INFORMATION
  Report Type: 
  Country: None (occurrence: None)
  Receive Date: 20090716
  Receipt Date: 20080805
  Transmission Date: 20100115
  Serious: Yes (Hospitalization)
  Sender: FDA-Public Use
  Company Number: 2008BI019862

PATIENT
  Sex: Male
  Weight: 84.8226 kg

DRUGS (1)
  1. AVONEX [Suspect]
     Indication: MULTIPLE SCLEROSIS
     Dosage: 30 UG;QW;IM

REACTIONS (3)
  - DIZZINESS [None]
  - MULTIPLE SCLEROSIS RELAPSE [None]
  - PAIN [None]
